FAERS Safety Report 5129662-0 (Version None)
Quarter: 2006Q4

REPORT INFORMATION
  Report Type: 
  Country: None (occurrence: None)
  Receive Date: 20061018
  Receipt Date: 20060912
  Transmission Date: 20070319
  Serious: Yes (Other)
  Sender: FDA-Public Use
  Company Number: US-GLAXOSMITHKLINE-A0619926A

PATIENT
  Sex: Female

DRUGS (10)
  1. FLOVENT [Suspect]
     Indication: ASTHMA
     Dosage: 2PUFF TWICE PER DAY
     Route: 055
  2. ADVAIR DISKUS 100/50 [Suspect]
     Indication: DRUG USE FOR UNKNOWN INDICATION
     Route: 055
  3. PROVENTIL [Concomitant]
  4. SPIRIVA [Concomitant]
  5. SEREVENT [Concomitant]
  6. SINGULAIR [Concomitant]
  7. TRIAMTERENE [Concomitant]
  8. ALDACTONE [Concomitant]
  9. ZETIA [Concomitant]
  10. ACTONEL [Concomitant]

REACTIONS (8)
  - ASTHENIA [None]
  - DYSPHONIA [None]
  - LARYNGEAL OEDEMA [None]
  - PHARMACEUTICAL PRODUCT COMPLAINT [None]
  - PLEURITIC PAIN [None]
  - RESPIRATORY TRACT IRRITATION [None]
  - THROAT IRRITATION [None]
  - VOCAL CORD DISORDER [None]
